FAERS Safety Report 12076636 (Version 1)
Quarter: 2016Q1

REPORT INFORMATION
  Report Type: Spontaneous
  Country: US (occurrence: US)
  Receive Date: 20160215
  Receipt Date: 20160215
  Transmission Date: 20160526
  Serious: No
  Sender: FDA-Public Use
  Company Number: US-BAYER-2016-023823

PATIENT
  Age: 50 Year
  Sex: Female
  Weight: 111.11 kg

DRUGS (2)
  1. ALEVE [Suspect]
     Active Substance: NAPROXEN SODIUM
     Indication: PAIN
     Dosage: UNK UNK, HS
     Route: 048
     Dates: start: 2015
  2. ALEVE [Suspect]
     Active Substance: NAPROXEN SODIUM

REACTIONS (1)
  - Product use issue [None]

NARRATIVE: CASE EVENT DATE: 2015
